FAERS Safety Report 19499779 (Version 3)
Quarter: 2021Q3

REPORT INFORMATION
  Report Type: Spontaneous
  Country: ID (occurrence: ID)
  Receive Date: 20210706
  Receipt Date: 20210818
  Transmission Date: 20211014
  Serious: Yes (Other)
  Sender: FDA-Public Use
  Company Number: ID-ASTRAZENECA-2021A597777

PATIENT
  Age: 35 Year
  Sex: Male
  Weight: 73 kg

DRUGS (6)
  1. NEXIUM [Suspect]
     Active Substance: ESOMEPRAZOLE MAGNESIUM
     Indication: VOMITING
     Dosage: 40.0MG UNKNOWN
     Route: 065
     Dates: start: 20210624, end: 20210630
  2. VOMETA [Concomitant]
     Active Substance: DOMPERIDONE
     Dosage: UNKNOWN
     Route: 065
     Dates: end: 20210630
  3. NEXIUM [Suspect]
     Active Substance: ESOMEPRAZOLE MAGNESIUM
     Indication: GASTROOESOPHAGEAL REFLUX DISEASE
     Dosage: 40.0MG UNKNOWN
     Route: 065
     Dates: start: 20210624, end: 20210630
  4. NEXIUM [Suspect]
     Active Substance: ESOMEPRAZOLE MAGNESIUM
     Indication: NAUSEA
     Dosage: 40.0MG UNKNOWN
     Route: 065
     Dates: start: 20210624, end: 20210630
  5. KUTUS KUTUS HERBAL OINTMENT [Concomitant]
     Dosage: UNKNOWN
     Route: 065
  6. POLYSILANE [Concomitant]
     Dosage: UNKNOWN
     Route: 065
     Dates: end: 20210630

REACTIONS (1)
  - COVID-19 [Recovered/Resolved]

NARRATIVE: CASE EVENT DATE: 20210624
